FAERS Safety Report 10897659 (Version 1)
Quarter: 2015Q1

REPORT INFORMATION
  Report Type: Spontaneous
  Country: CA (occurrence: CA)
  Receive Date: 20150309
  Receipt Date: 20150309
  Transmission Date: 20150721
  Serious: Yes (Hospitalization, Other)
  Sender: FDA-Public Use
  Company Number: CA-009507513-1503CAN002972

PATIENT
  Sex: Male

DRUGS (1)
  1. TEMODAL [Suspect]
     Active Substance: TEMOZOLOMIDE
     Indication: GLIOBLASTOMA MULTIFORME
     Dosage: 340 MG, ONCE DAILYX5 DAY PER 28 DAY CYCLE
     Route: 048
     Dates: start: 20140804

REACTIONS (2)
  - Glioblastoma multiforme [Not Recovered/Not Resolved]
  - Drug ineffective [Not Recovered/Not Resolved]
